FAERS Safety Report 5102172-2 (Version None)
Quarter: 2006Q3

REPORT INFORMATION
  Report Type: 
  Country: None (occurrence: None)
  Receive Date: 20060912
  Receipt Date: 20060830
  Transmission Date: 20061208
  Serious: Yes (Other)
  Sender: FDA-Public Use
  Company Number: PHBS2006JP13286

PATIENT
  Age: 62 Year
  Sex: Female

DRUGS (4)
  1. HERCEPTIN [Suspect]
     Dosage: 4 MG/KG/DAY
     Route: 065
     Dates: start: 20050501
  2. HERCEPTIN [Suspect]
     Dosage: 2 MG/KG/DAY
     Route: 065
  3. NAVELBINE [Suspect]
     Dosage: 15-25 MG/M2
     Route: 065
     Dates: start: 20060101
  4. AREDIA [Suspect]
     Indication: METASTASES TO BONE
     Dosage: 90 MG, UNK
     Route: 042
     Dates: start: 20050501, end: 20060101

REACTIONS (5)
  - ACUTE MYELOID LEUKAEMIA [None]
  - BLAST CELLS [None]
  - LEUKAEMIA [None]
  - METASTASES TO LYMPH NODES [None]
  - PANCYTOPENIA [None]
